FAERS Safety Report 23500057 (Version 1)
Quarter: 2024Q1

REPORT INFORMATION
  Report Type: Spontaneous
  Country: GB (occurrence: GB)
  Receive Date: 20240208
  Receipt Date: 20240208
  Transmission Date: 20240409
  Serious: No
  Sender: FDA-Public Use
  Company Number: None

PATIENT
  Age: 22 Year
  Sex: Female
  Weight: 62 kg

DRUGS (7)
  1. CEPHALEXIN [Suspect]
     Active Substance: CEPHALEXIN
     Indication: Ill-defined disorder
     Dosage: UNK
     Route: 065
     Dates: start: 20230731
  2. BETNOVATE [Concomitant]
     Active Substance: BETAMETHASONE
     Indication: Ill-defined disorder
     Dosage: UNK, BID
     Route: 065
     Dates: start: 20180306
  3. CEPHALEXIN [Concomitant]
     Active Substance: CEPHALEXIN
     Indication: Ill-defined disorder
     Dosage: 1 DOSAGE FORM, BID
     Route: 065
     Dates: start: 20230629, end: 20230706
  4. FOLIC ACID [Concomitant]
     Active Substance: FOLIC ACID
     Indication: Ill-defined disorder
     Dosage: UNK (TAKE ONE DAILY WITH VITAMIN B12 TABLETS)
     Route: 065
     Dates: start: 20230714
  5. HYDROCORTISONE [Concomitant]
     Active Substance: HYDROCORTISONE
     Indication: Ill-defined disorder
     Dosage: UNK, OD (APPLY ONCE DAILY TO AFFECTED AREAS SUITABLE FOR)
     Route: 065
     Dates: start: 20230531, end: 20230628
  6. ETHINYL ESTRADIOL\LEVONORGESTREL ACETATE [Concomitant]
     Active Substance: ETHINYL ESTRADIOL\LEVONORGESTREL ACETATE
     Indication: Ill-defined disorder
     Dosage: 1 DOSAGE FORM (CONTRACEPTIVE PILL-TAKE ONE TABLET AT THE SAME)
     Route: 065
     Dates: start: 20220407
  7. NORETHINDRONE [Concomitant]
     Active Substance: NORETHINDRONE
     Indication: Ill-defined disorder
     Dosage: UNK, TID (TAKE ONE TO THREE DAILY TO PREVENT TEH UNWANT)
     Route: 065
     Dates: start: 20210514, end: 20230713

REACTIONS (1)
  - Contusion [Recovering/Resolving]

NARRATIVE: CASE EVENT DATE: 20230731
